FAERS Safety Report 8939514 (Version 1)
Quarter: 2012Q4

REPORT INFORMATION
  Report Type: 
  Country: US (occurrence: US)
  Receive Date: 20121203
  Receipt Date: 20121203
  Transmission Date: 20130627
  Serious: Yes (Other)
  Sender: FDA-Public Use
  Company Number: US-BRISTOL-MYERS SQUIBB COMPANY-17148958

PATIENT
  Sex: Female
  Weight: 74.83 kg

DRUGS (3)
  1. REYATAZ CAPS 300 MG [Suspect]
     Indication: HIV INFECTION
     Dosage: increased to 400mg/day on 03oct2012.
  2. RITONAVIR [Suspect]
  3. TRUVADA [Suspect]

REACTIONS (4)
  - Viral load increased [Unknown]
  - Malabsorption [Unknown]
  - Diarrhoea [Unknown]
  - Drug ineffective [Unknown]
